FAERS Safety Report 5495270-5 (Version None)
Quarter: 2007Q4

REPORT INFORMATION
  Report Type: 
  Country: None (occurrence: None)
  Receive Date: 20071023
  Receipt Date: 20071008
  Transmission Date: 20080405
  Serious: Yes (Hospitalization)
  Sender: FDA-Public Use
  Company Number: 2005US000707

PATIENT
  Age: 36 Year
  Sex: Male

DRUGS (16)
  1. PROGRAF [Suspect]
     Indication: PROPHYLAXIS AGAINST TRANSPLANT REJECTION
     Dosage: ORAL; 2 MG, BID, ORAL
     Route: 048
     Dates: start: 20050308
  2. MYCOPHENOLATE MOFETIL [Suspect]
     Indication: PROPHYLAXIS AGAINST TRANSPLANT REJECTION
     Dosage: 500.00 MG, QID, ORAL
     Route: 048
     Dates: start: 20050308, end: 20050527
  3. PREDNISONE TAB [Suspect]
     Indication: PROPHYLAXIS AGAINST TRANSPLANT REJECTION
     Dosage: 10.00 MG, UID/QD, ORAL
     Route: 048
     Dates: start: 20050309
  4. K-PHOS (POTASSIUM PHOSPHATE MONOBASIC) [Concomitant]
  5. ALLOPURINOL [Concomitant]
  6. PROCARDIA XL [Concomitant]
  7. COREG [Concomitant]
  8. COLCHICUM JTL LIQ [Concomitant]
  9. LIPITOR [Concomitant]
  10. BACTRIM [Concomitant]
  11. DIFLUCAN [Concomitant]
  12. SYNTHROID [Concomitant]
  13. CYTOVENE [Concomitant]
  14. C MULTIVIT (VITAMINS NOS) [Concomitant]
  15. ASPIRIN [Concomitant]
  16. MAGNESIUM OXIDE (MAGNESIUM OXIDE) [Concomitant]

REACTIONS (4)
  - BLOOD CREATINE INCREASED [None]
  - CLOSTRIDIUM DIFFICILE COLITIS [None]
  - CYTOMEGALOVIRUS ENTEROCOLITIS [None]
  - DYSPEPSIA [None]
